FAERS Safety Report 6517581-4 (Version None)
Quarter: 2009Q4

REPORT INFORMATION
  Report Type: 
  Country: None (occurrence: None)
  Receive Date: 20091224
  Receipt Date: 20091214
  Transmission Date: 20100525
  Serious: Yes (Hospitalization)
  Sender: FDA-Public Use
  Company Number: PHHY2009JP56660

PATIENT
  Age: 74 Year
  Sex: Female

DRUGS (8)
  1. DIOVAN [Suspect]
     Indication: HYPERTENSION
     Dosage: 80MG DAILY
     Route: 048
     Dates: start: 20090315
  2. PREDONINE [Suspect]
     Dosage: 40MG TO 50MG DAILY
     Route: 048
  3. EPOGIN [Suspect]
     Dosage: 6000 U, UNK
     Route: 048
  4. BAKTAR [Suspect]
     Route: 048
  5. PROTECADIN [Suspect]
     Dosage: 10MG DAILY
  6. PARIET [Suspect]
     Dosage: 10MG DAILY
  7. MICONAZOLE NITRATE [Suspect]
     Route: 048
  8. SUCRALFATE [Suspect]
     Dosage: 3G DAILY

REACTIONS (2)
  - RASH [None]
  - TOXIC EPIDERMAL NECROLYSIS [None]
